FAERS Safety Report 8889104 (Version 2)
Quarter: 2014Q2

REPORT INFORMATION
  Report Type: Spontaneous
  Country: IT (occurrence: IT)
  Receive Date: 20121106
  Receipt Date: 20131018
  Transmission Date: 20141212
  Serious: Yes (Other)
  Sender: FDA-Public Use
  Company Number: IT-PFIZER INC-2012270846

PATIENT
  Age: 34 Week
  Sex: Male
  Weight: 2.24 kg

DRUGS (3)
  1. MORPHINE SULFATE [Suspect]
     Indication: DRUG WITHDRAWAL SYNDROME NEONATAL
     Dosage: 0.5 MG/KG/24 H IN FOUR DIVIDED DOSES GIVEN EVERY 6 H
     Route: 048
  2. MORPHINE SULFATE [Suspect]
     Dosage: 0.4 MG/KG/24 H IN THREE DIVIDED DOSES GIVEN EVERY 8 H
     Route: 048
  3. ZIDOVUDINE [Concomitant]
     Indication: HIV INFECTION
     Dosage: UNK
     Route: 048

REACTIONS (2)
  - Renal failure acute [Recovered/Resolved]
  - Hydronephrosis [Recovered/Resolved]
